FAERS Safety Report 24370650 (Version 1)
Quarter: 2024Q3

REPORT INFORMATION
  Report Type: Spontaneous
  Country: US (occurrence: US)
  Receive Date: 20240927
  Receipt Date: 20240927
  Transmission Date: 20241017
  Serious: No
  Sender: ABBVIE
  Company Number: US-ABBVIE-5929886

PATIENT
  Sex: Male

DRUGS (2)
  1. BYSTOLIC [Suspect]
     Active Substance: NEBIVOLOL HYDROCHLORIDE
     Indication: Tachycardia
     Route: 065
     Dates: start: 2006
  2. NEBIVOLOL [Suspect]
     Active Substance: NEBIVOLOL
     Indication: Product used for unknown indication
     Route: 065

REACTIONS (4)
  - Pulse abnormal [Unknown]
  - Atrioventricular block first degree [Unknown]
  - Heart rate increased [Unknown]
  - Heart rate irregular [Unknown]
